FAERS Safety Report 16671337 (Version 23)
Quarter: 2025Q1

REPORT INFORMATION
  Report Type: Report from Study
  Country: CO (occurrence: CO)
  Receive Date: 20190806
  Receipt Date: 20250123
  Transmission Date: 20250409
  Serious: Yes (Death, Hospitalization, Other)
  Sender: TAKEDA
  Company Number: CO-TAKEDA-2019TUS046467

PATIENT
  Age: 81 Year
  Sex: Male
  Weight: 60 kg

DRUGS (6)
  1. VEDOLIZUMAB [Suspect]
     Active Substance: VEDOLIZUMAB
     Indication: Crohn^s disease
  2. VEDOLIZUMAB [Suspect]
     Active Substance: VEDOLIZUMAB
     Dosage: 300 MILLIGRAM, Q6WEEKS
  3. PANTOPRAZOLE [Concomitant]
     Active Substance: PANTOPRAZOLE
  4. ASPIRIN [Concomitant]
     Active Substance: ASPIRIN
  5. FLUOXETINE HYDROCHLORIDE [Concomitant]
     Active Substance: FLUOXETINE HYDROCHLORIDE
  6. TRAZODONE HYDROCHLORIDE [Concomitant]
     Active Substance: TRAZODONE HYDROCHLORIDE

REACTIONS (17)
  - Pneumonia [Fatal]
  - Prostatic disorder [Unknown]
  - Respiratory failure [Not Recovered/Not Resolved]
  - Hip fracture [Unknown]
  - Crohn^s disease [Unknown]
  - Haemorrhoids [Recovering/Resolving]
  - Blood pressure decreased [Not Recovered/Not Resolved]
  - Treatment noncompliance [Unknown]
  - Weight decreased [Unknown]
  - Fall [Unknown]
  - Drug ineffective [Unknown]
  - Off label use [Unknown]
  - Influenza like illness [Not Recovered/Not Resolved]
  - Product availability issue [Unknown]
  - Abdominal pain [Unknown]
  - Vomiting [Unknown]
  - Diarrhoea [Not Recovered/Not Resolved]

NARRATIVE: CASE EVENT DATE: 20200907
